FAERS Safety Report 25653899 (Version 1)
Quarter: 2025Q3

REPORT INFORMATION
  Report Type: Other
  Country: US (occurrence: US)
  Receive Date: 20250807
  Receipt Date: 20250807
  Transmission Date: 20251021
  Serious: Yes (Other)
  Sender: Fourrts (India) Laboratories
  Company Number: US-Fourrts (India) Laboratories Pvt. Ltd.-2182031

PATIENT
  Age: 60 Year
  Sex: Female

DRUGS (3)
  1. TADALAFIL [Suspect]
     Active Substance: TADALAFIL
     Indication: Pulmonary arterial hypertension
  2. MACITENTAN [Suspect]
     Active Substance: MACITENTAN
  3. TREPROSTINIL [Suspect]
     Active Substance: TREPROSTINIL

REACTIONS (1)
  - Drug ineffective [Unknown]
